FAERS Safety Report 11927650 (Version 1)
Quarter: 2016Q1

REPORT INFORMATION
  Report Type: Spontaneous
  Country: US (occurrence: US)
  Receive Date: 20160119
  Receipt Date: 20160119
  Transmission Date: 20160526
  Serious: No
  Sender: FDA-Public Use
  Company Number: US-PFIZER INC-2015475590

PATIENT
  Age: 49 Year
  Sex: Male
  Weight: 93 kg

DRUGS (1)
  1. GABAPENTIN. [Suspect]
     Active Substance: GABAPENTIN
     Indication: SPINAL PAIN
     Dosage: 800 MG, 3X/DAY
     Route: 048
     Dates: start: 201510, end: 20151202

REACTIONS (1)
  - Drug ineffective [Unknown]
